FAERS Safety Report 14211331 (Version 3)
Quarter: 2017Q4

REPORT INFORMATION
  Report Type: Report from Study
  Country: US (occurrence: US)
  Receive Date: 20171121
  Receipt Date: 20171222
  Transmission Date: 20180321
  Serious: Yes (Hospitalization, Other)
  Sender: FDA-Public Use
  Company Number: US-GILEAD-2017-0305868

PATIENT
  Age: 63 Year
  Sex: Female
  Weight: 133 kg

DRUGS (1)
  1. AMBRISENTAN [Suspect]
     Active Substance: AMBRISENTAN
     Indication: PULMONARY ARTERIAL HYPERTENSION
     Dosage: 10 MG, QD
     Route: 048
     Dates: start: 20171021

REACTIONS (9)
  - Haematoma [Recovering/Resolving]
  - Abscess [Recovering/Resolving]
  - Atrial fibrillation [Unknown]
  - Erythema [Not Recovered/Not Resolved]
  - Erythema [Recovering/Resolving]
  - Cellulitis [Recovering/Resolving]
  - Pain in extremity [Recovering/Resolving]
  - Pneumonia [Unknown]
  - Peripheral swelling [Recovering/Resolving]

NARRATIVE: CASE EVENT DATE: 20171022
